FAERS Safety Report 24349157 (Version 2)
Quarter: 2024Q4

REPORT INFORMATION
  Report Type: Report from Study
  Country: US (occurrence: US)
  Receive Date: 20240923
  Receipt Date: 20241015
  Transmission Date: 20250114
  Serious: Yes (Life-Threatening, Hospitalization, Other)
  Sender: UCB
  Company Number: US-UCBSA-2024046282

PATIENT
  Age: 60 Year
  Sex: Female
  Weight: 118 kg

DRUGS (1)
  1. CERTOLIZUMAB PEGOL [Suspect]
     Active Substance: CERTOLIZUMAB PEGOL
     Indication: Axial spondyloarthritis
     Dosage: 400 MILLIGRAM, EV 2 WEEKS(QOW)
     Route: 058
     Dates: start: 20211210, end: 202409

REACTIONS (3)
  - Stress cardiomyopathy [Recovering/Resolving]
  - Hypertensive crisis [Recovering/Resolving]
  - Tricuspid valve incompetence [Unknown]

NARRATIVE: CASE EVENT DATE: 20240905
